APPROVED DRUG PRODUCT: BALVERSA
Active Ingredient: ERDAFITINIB
Strength: 4MG
Dosage Form/Route: TABLET;ORAL
Application: N212018 | Product #002
Applicant: JANSSEN BIOTECH INC
Approved: Apr 12, 2019 | RLD: Yes | RS: No | Type: RX

PATENTS:
Patent 10898482 | Expires: Feb 9, 2036
Patent 10898482 | Expires: Feb 9, 2036
Patent 10898482 | Expires: Feb 9, 2036
Patent 10898482 | Expires: Feb 9, 2036
Patent 12037644 | Expires: Oct 18, 2035
Patent 11077106 | Expires: Feb 2, 2038
Patent 10478494 | Expires: Aug 13, 2036
Patent 10898482 | Expires: Feb 9, 2036
Patent 10898482 | Expires: Feb 9, 2036
Patent 10898482 | Expires: Feb 9, 2036
Patent 9464071 | Expires: Apr 28, 2031
Patent 11684620 | Expires: Feb 9, 2036
Patent 11684620 | Expires: Feb 9, 2036
Patent 11684620 | Expires: Feb 9, 2036
Patent 11077106 | Expires: Feb 2, 2038
Patent 9902714 | Expires: Mar 26, 2035
Patent 8895601 | Expires: Apr 12, 2033

EXCLUSIVITY:
Code: I-930 | Date: Jan 19, 2027